FAERS Safety Report 17677650 (Version 1)
Quarter: 2020Q2

REPORT INFORMATION
  Report Type: Report from Study
  Country: US (occurrence: US)
  Receive Date: 20200416
  Receipt Date: 20200416
  Transmission Date: 20200714
  Serious: Yes (Other)
  Sender: FDA-Public Use
  Company Number: NVSC2020US100825

PATIENT
  Sex: Female

DRUGS (1)
  1. GILENYA [Suspect]
     Active Substance: FINGOLIMOD HYDROCHLORIDE
     Indication: MULTIPLE SCLEROSIS
     Dosage: 0.5 MG, QD
     Route: 048
     Dates: start: 2018

REACTIONS (6)
  - Sinus disorder [Unknown]
  - Limb discomfort [Unknown]
  - Hypoaesthesia [Unknown]
  - Depression [Unknown]
  - Multiple sclerosis relapse [Unknown]
  - Hypoaesthesia oral [Unknown]
